FAERS Safety Report 14221620 (Version 2)
Quarter: 2018Q1

REPORT INFORMATION
  Report Type: Report from Study
  Country: US (occurrence: US)
  Receive Date: 20171124
  Receipt Date: 20180209
  Transmission Date: 20180508
  Serious: Yes (Hospitalization, Other)
  Sender: FDA-Public Use
  Company Number: US-ACTELION-A-US2016-133806

PATIENT
  Age: 74 Year
  Sex: Female
  Weight: 72.56 kg

DRUGS (2)
  1. FLECAINIDE [Concomitant]
     Active Substance: FLECAINIDE
  2. OPSUMIT [Suspect]
     Active Substance: MACITENTAN
     Indication: PULMONARY ARTERIAL HYPERTENSION
     Dosage: 10 MG, QD
     Route: 048

REACTIONS (7)
  - Fatigue [Unknown]
  - Cardioversion [Unknown]
  - Atrial fibrillation [Unknown]
  - Dyspnoea [Unknown]
  - Nausea [Unknown]
  - Urinary tract infection [Unknown]
  - Seasonal allergy [Unknown]
